FAERS Safety Report 21269008 (Version 2)
Quarter: 2022Q3

REPORT INFORMATION
  Report Type: Other
  Country: GR (occurrence: GR)
  Receive Date: 20220830
  Receipt Date: 20220904
  Transmission Date: 20221026
  Serious: Yes (Hospitalization, Other)
  Sender: FDA-Public Use
  Company Number: GR-DEXPHARM-20221391

PATIENT
  Sex: Male

DRUGS (11)
  1. DEXAMETHASONE [Suspect]
     Active Substance: DEXAMETHASONE
     Indication: Epilepsy
     Dates: start: 201909
  2. IRINOTECAN [Concomitant]
     Active Substance: IRINOTECAN
     Indication: Condition aggravated
     Dosage: DOSAGE WAS INCREASED TO 40 MG/M SUP(2) ON DAYS 1-5 IN THE THIRD COURSE.
  3. COTRIMOXAZOLE [Concomitant]
     Active Substance: SULFAMETHOXAZOLE\TRIMETHOPRIM
  4. TEMOZOLOMIDE [Suspect]
     Active Substance: TEMOZOLOMIDE
     Dosage: 75 MG/M SUP(2) /DAY
  5. TEMOZOLOMIDE [Suspect]
     Active Substance: TEMOZOLOMIDE
     Dosage: 150 MG/M SUP(2) /DAY FOR 5 DAYS (RECYCLED EVERY 28 DAYS)
  6. TEMOZOLOMIDE [Suspect]
     Active Substance: TEMOZOLOMIDE
     Dosage: 100 MG/M SUP(2) /DAY FOR 5 DAYS (RECYCLED EVERY 28 DAYS)
  7. CEFIXIME [Concomitant]
     Active Substance: CEFIXIME
     Indication: Colitis
     Route: 048
  8. DIMETHINDENE MALEATE [Concomitant]
     Active Substance: DIMETHINDENE MALEATE
  9. BEVACIZUMAB [Concomitant]
     Active Substance: BEVACIZUMAB
  10. PALONOSETRON [Concomitant]
     Active Substance: PALONOSETRON
  11. APREPITANT [Concomitant]
     Active Substance: APREPITANT

REACTIONS (3)
  - Drug-induced liver injury [Recovered/Resolved]
  - Hepatic enzyme increased [Recovered/Resolved]
  - Off label use [Recovered/Resolved]
